FAERS Safety Report 13100817 (Version 1)
Quarter: 2017Q1

REPORT INFORMATION
  Report Type: Spontaneous
  Country: US (occurrence: US)
  Receive Date: 20170109
  Receipt Date: 20170109
  Transmission Date: 20170428
  Serious: Yes (Hospitalization)
  Sender: FDA-Public Use
  Company Number: None

PATIENT
  Age: 70 Year
  Sex: Male
  Weight: 77.7 kg

DRUGS (1)
  1. LISINOPRIL. [Suspect]
     Active Substance: LISINOPRIL
     Route: 048
     Dates: start: 20140819, end: 20161124

REACTIONS (5)
  - Hypoglycaemia [None]
  - Acute kidney injury [None]
  - Dialysis [None]
  - Hyperkalaemia [None]
  - Dehydration [None]

NARRATIVE: CASE EVENT DATE: 20161117
